FAERS Safety Report 7080908-1 (Version None)
Quarter: 2010Q4

REPORT INFORMATION
  Report Type: 
  Country: None (occurrence: None)
  Receive Date: 20101103
  Receipt Date: 20101025
  Transmission Date: 20110411
  Serious: Yes (Hospitalization)
  Sender: FDA-Public Use
  Company Number: US-SANOFI-AVENTIS-2010SA062386

PATIENT
  Age: 28 Year
  Sex: Male

DRUGS (12)
  1. FUROSEMIDE [Suspect]
     Indication: CARDIOMYOPATHY
     Route: 065
  2. FUROSEMIDE [Suspect]
     Dosage: ON DAY 65 AND DAY 81
     Route: 048
  3. FUROSEMIDE [Suspect]
     Dosage: ON DAY 66 AND 76
     Route: 042
  4. FUROSEMIDE [Suspect]
     Dosage: DAY 82 TO 84
     Route: 065
  5. FUROSEMIDE [Suspect]
     Dosage: DAY 81
     Route: 042
  6. LINCOMYCIN [Suspect]
     Indication: PHARYNGITIS
     Route: 030
  7. AMOXICILLIN [Suspect]
     Indication: PHARYNGITIS
     Route: 048
  8. ENALAPRIL MALEATE [Suspect]
     Route: 065
  9. ACETAMINOPHEN [Suspect]
     Route: 065
  10. METOPROLOL [Concomitant]
  11. SPIRONOLACTONE [Concomitant]
  12. DIGOXIN [Concomitant]

REACTIONS (7)
  - CONDITION AGGRAVATED [None]
  - CROSS SENSITIVITY REACTION [None]
  - INFECTION [None]
  - RASH PRURITIC [None]
  - RENAL FAILURE ACUTE [None]
  - STEVENS-JOHNSON SYNDROME [None]
  - THROMBOSIS [None]
